FAERS Safety Report 19761076 (Version 3)
Quarter: 2021Q4

REPORT INFORMATION
  Report Type: Spontaneous
  Country: JP (occurrence: JP)
  Receive Date: 20210830
  Receipt Date: 20211101
  Transmission Date: 20220303
  Serious: Yes (Other)
  Sender: FDA-Public Use
  Company Number: JP-GLAXOSMITHKLINE-JP2021JPN178789

PATIENT
  Age: 87 Year
  Sex: Female

DRUGS (15)
  1. VALTREX [Suspect]
     Active Substance: VALACYCLOVIR HYDROCHLORIDE
     Indication: Herpes zoster
     Dosage: 3000 MG
     Route: 048
     Dates: start: 20210724, end: 20210730
  2. VALTREX [Suspect]
     Active Substance: VALACYCLOVIR HYDROCHLORIDE
     Dosage: 1500 MG
     Route: 048
     Dates: start: 20210801, end: 20210803
  3. ASPIRIN [Concomitant]
     Active Substance: ASPIRIN
     Dosage: UNK
  4. AMLODIPINE BESYLATE [Concomitant]
     Active Substance: AMLODIPINE BESYLATE
     Dosage: UNK
  5. ATORVASTATIN OD TABLETS [Concomitant]
     Dosage: UNK
  6. LOSARHYD COMBINATION TABLETS [Concomitant]
     Dosage: UNK
  7. CILOSTAZOL OD TABLET [Concomitant]
     Dosage: UNK
  8. ISOSORBIDE DINITRATE [Concomitant]
     Active Substance: ISOSORBIDE DINITRATE
     Dosage: UNK
  9. KETOPROFEN TAPE [Concomitant]
  10. SENNOSIDES [Concomitant]
     Active Substance: SENNOSIDES
     Dosage: UNK
  11. TSUMURA DAIOKANZOTO [Concomitant]
     Dosage: UNK
  12. AMLODIPINE [Concomitant]
     Active Substance: AMLODIPINE BESYLATE
     Indication: Hypertension
     Dosage: 5 MG
     Route: 048
  13. NEXIUM [Concomitant]
     Active Substance: ESOMEPRAZOLE MAGNESIUM
     Indication: Gastritis
     Dosage: 20 MG
     Route: 048
  14. PITAVASTATIN CALCIUM [Concomitant]
     Active Substance: PITAVASTATIN CALCIUM
     Indication: Lipids abnormal
     Dosage: 2 MG
     Route: 048
  15. MAGNESIUM OXIDE [Concomitant]
     Active Substance: MAGNESIUM OXIDE
     Indication: Constipation
     Dosage: 990 MG
     Route: 048

REACTIONS (5)
  - Altered state of consciousness [Recovered/Resolved]
  - Renal impairment [Unknown]
  - Depressed level of consciousness [Recovered/Resolved]
  - Prescribed overdose [Unknown]
  - Incorrect product administration duration [Unknown]

NARRATIVE: CASE EVENT DATE: 20210724
